FAERS Safety Report 7801430-8 (Version None)
Quarter: 2011Q4

REPORT INFORMATION
  Report Type: 
  Country: None (occurrence: None)
  Receive Date: 20111006
  Receipt Date: 20111006
  Transmission Date: 20120403
  Serious: Yes (Hospitalization)
  Sender: FDA-Public Use
  Company Number: None

PATIENT
  Age: 82 Year
  Sex: Female
  Weight: 80.2 kg

DRUGS (13)
  1. AMLODIPINE [Concomitant]
  2. COUMADIN [Suspect]
     Dosage: 7.5MG TUES F CHRONIC
  3. CITALOPRAN [Concomitant]
  4. CLONIDINE [Concomitant]
  5. FUROSEMIDE [Concomitant]
  6. PREDNISONE [Concomitant]
  7. METOPROLOL TARTRATE [Concomitant]
  8. COUMADIN [Suspect]
     Indication: DEEP VEIN THROMBOSIS
     Dosage: 5MG MWTHFSS PO CHRONIC
  9. SPIRONOLACTONE [Concomitant]
  10. JANUVIA [Concomitant]
  11. LANTUS [Concomitant]
  12. HYDRALAZINE HCL [Concomitant]
  13. LEVOTHYROXINE SODIUM [Concomitant]

REACTIONS (4)
  - ANAEMIA [None]
  - INTERNATIONAL NORMALISED RATIO INCREASED [None]
  - DIVERTICULUM [None]
  - DEEP VEIN THROMBOSIS [None]
